FAERS Safety Report 9070633 (Version 1)
Quarter: 2013Q1

REPORT INFORMATION
  Report Type: Spontaneous
  Country: US (occurrence: US)
  Receive Date: 20130206
  Receipt Date: 20130206
  Transmission Date: 20140127
  Serious: No
  Sender: FDA-Public Use
  Company Number: US-ALLERGAN-1204317US

PATIENT
  Age: 66 Year
  Sex: Female

DRUGS (8)
  1. RESTASIS? [Suspect]
     Indication: DRY EYE
     Dosage: 2 GTT, UNK
     Route: 047
     Dates: start: 201104, end: 201110
  2. RESTASIS? [Suspect]
     Dosage: 2 GTT, BID
     Route: 047
     Dates: start: 201202, end: 20120324
  3. LEVOTHYROID [Concomitant]
     Indication: HYPOTHYROIDISM
     Dosage: UNK
     Route: 048
  4. NEXIUM                             /01479302/ [Concomitant]
     Indication: GASTROOESOPHAGEAL REFLUX DISEASE
     Dosage: UNK
     Route: 048
  5. PERCOCET                           /00446701/ [Concomitant]
     Indication: FIBROMYALGIA
     Dosage: UNK
  6. PREDNISONE [Concomitant]
     Indication: RHEUMATOID ARTHRITIS
     Dosage: UNK
  7. ZOCOR [Concomitant]
     Indication: BLOOD CHOLESTEROL INCREASED
     Dosage: UNK
     Route: 048
  8. HYDROCHLOROTHIAZIDE [Concomitant]
     Indication: HYPERTENSION
     Dosage: UNK
     Route: 048

REACTIONS (7)
  - Incorrect dose administered [Unknown]
  - Burning sensation [Recovered/Resolved]
  - Eye irritation [Recovered/Resolved]
  - Eye pain [Recovered/Resolved]
  - Eye pain [Recovered/Resolved]
  - Foreign body sensation in eyes [Recovered/Resolved]
  - Eye pain [Recovered/Resolved]
